FAERS Safety Report 14786817 (Version 1)
Quarter: 2018Q2

REPORT INFORMATION
  Report Type: Spontaneous
  Country: JP (occurrence: JP)
  Receive Date: 20180420
  Receipt Date: 20180420
  Transmission Date: 20180711
  Serious: Yes (Other)
  Sender: FDA-Public Use
  Company Number: JP-009507513-1804JPN008415

PATIENT
  Age: 24 Year
  Sex: Female
  Weight: 43 kg

DRUGS (4)
  1. ELCITONIN [Suspect]
     Active Substance: ELCATONIN
     Indication: OSTEOPOROSIS
  2. METHYLPREDNISOLONE. [Concomitant]
     Active Substance: METHYLPREDNISOLONE
     Dosage: 24 MG/DAY
     Route: 048
  3. ALENDRONATE SODIUM. [Suspect]
     Active Substance: ALENDRONATE SODIUM
     Indication: OSTEOPOROSIS
     Dosage: UNK
     Route: 048
  4. VITAMIN D [Suspect]
     Active Substance: CHOLECALCIFEROL
     Indication: OSTEOPOROSIS

REACTIONS (1)
  - Drug ineffective [Unknown]
